FAERS Safety Report 15577240 (Version 1)
Quarter: 2018Q4

REPORT INFORMATION
  Report Type: Spontaneous
  Country: ES (occurrence: ES)
  Receive Date: 20181102
  Receipt Date: 20181102
  Transmission Date: 20190205
  Serious: Yes (Life-Threatening, Hospitalization, Other)
  Sender: FDA-Public Use
  Company Number: ES-AUROBINDO-AUR-APL-2018-053192

PATIENT
  Age: 91 Year
  Sex: Female

DRUGS (4)
  1. AMOXICILLIN / CLAVULANIC ACID FILM-COATED TABLETS 875/125MG [Suspect]
     Active Substance: AMOXICILLIN\CLAVULANIC ACID
     Indication: URINARY TRACT INFECTION
     Dosage: UNK
     Route: 048
     Dates: start: 20180910, end: 20180914
  2. CEFAZOLIN [Suspect]
     Active Substance: CEFAZOLIN
     Indication: SEPTIC SHOCK
     Dosage: 2GR CADA 8 HORAS
     Route: 042
     Dates: start: 20180814, end: 20180824
  3. CLINDAMICIN                        /00166002/ [Suspect]
     Active Substance: CLINDAMYCIN
     Dosage: 300 MILLIGRAM, 3 TIMES A DAY
     Route: 048
     Dates: start: 20180825, end: 20180829
  4. CLINDAMICIN /00166002/ [Suspect]
     Active Substance: CLINDAMYCIN
     Indication: SEPTIC SHOCK
     Dosage: 600MG CADA 8 HORAS
     Route: 042
     Dates: start: 20180814, end: 20180824

REACTIONS (1)
  - Mixed liver injury [Recovering/Resolving]

NARRATIVE: CASE EVENT DATE: 20180914
